FAERS Safety Report 5093999-4 (Version None)
Quarter: 2006Q3

REPORT INFORMATION
  Report Type: 
  Country: None (occurrence: None)
  Receive Date: 20060728
  Receipt Date: 20060615
  Transmission Date: 20061208
  Serious: No
  Sender: FDA-Public Use
  Company Number: 254135

PATIENT
  Age: 57 Year
  Sex: Male
  Weight: 74.8 kg

DRUGS (4)
  1. LEVEMIR [Suspect]
     Indication: DIABETES MELLITUS INSULIN-DEPENDENT
     Dosage: 16 IU, QD, SUBCUTANEOUS
     Route: 058
     Dates: start: 20060101
  2. NOVOLOG FLEXPEN (INSULIN ASPART) [Suspect]
     Indication: DIABETES MELLITUS INSULIN-DEPENDENT
     Dosage: 20 IU, QD, SUBCUTANEOUS
     Route: 058
     Dates: start: 20060101
  3. NOVOFINE 30 (NEEDLE) [Concomitant]
  4. NOVOFINE 31 (NEEDLE) [Concomitant]

REACTIONS (1)
  - INJECTION SITE HAEMORRHAGE [None]
